FAERS Safety Report 6862648-4 (Version None)
Quarter: 2010Q2

REPORT INFORMATION
  Report Type: 
  Country: None (occurrence: None)
  Receive Date: 20100528
  Receipt Date: 20100420
  Transmission Date: 20101027
  Serious: No
  Sender: FDA-Public Use
  Company Number: 010493

PATIENT
  Age: 18 Year
  Sex: Male

DRUGS (1)
  1. LACOSAMIDE [Suspect]
     Dosage: (150 MG QD) ; (100 MG QD) ; (50 MG QD)

REACTIONS (3)
  - ABNORMAL BEHAVIOUR [None]
  - DRUG INEFFECTIVE [None]
  - FEELING ABNORMAL [None]
